FAERS Safety Report 11002888 (Version 1)
Quarter: 2015Q2

REPORT INFORMATION
  Report Type: Spontaneous
  Country: AT (occurrence: AT)
  Receive Date: 20150408
  Receipt Date: 20150408
  Transmission Date: 20150821
  Serious: Yes (Death)
  Sender: FDA-Public Use
  Company Number: AT-ABBVIE-15P-009-1372827-00

PATIENT
  Age: 77 Year
  Sex: Male

DRUGS (1)
  1. LEVODOPA/CARBIDOPA [Suspect]
     Active Substance: CARBIDOPA\LEVODOPA
     Indication: PARKINSON^S DISEASE
     Dosage: CR 1 (DAY): 5.2 ML/H CR 2 (NIGHT): 2.6 ML/H,ED 2.3 ML (BLOCKED FOR 3 HOURS)MD 3.5 ML
     Route: 050
     Dates: start: 20100420

REACTIONS (1)
  - Death [Fatal]

NARRATIVE: CASE EVENT DATE: 20150405
